FAERS Safety Report 4483853-0 (Version None)
Quarter: 2004Q4

REPORT INFORMATION
  Report Type: 
  Country: None (occurrence: None)
  Receive Date: 20041022
  Receipt Date: 20041022
  Transmission Date: 20050328
  Serious: No
  Sender: FDA-Public Use
  Company Number: None

PATIENT
  Age: 28 Day
  Sex: Male
  Weight: 1.3608 kg

DRUGS (1)
  1. POLY-VITAMIN  MULTI-VITAMINS  HI-TECH PHARMACAL CO [Suspect]
     Dosage: 0.5ML  DAILY  ORAL
     Route: 048
     Dates: start: 20041012, end: 20041021

REACTIONS (1)
  - MEDICATION ERROR [None]
